FAERS Safety Report 8803794 (Version 2)
Quarter: 2012Q4

REPORT INFORMATION
  Report Type: 
  Country: US (occurrence: US)
  Receive Date: 20120924
  Receipt Date: 20121029
  Transmission Date: 20130627
  Serious: Yes (Hospitalization)
  Sender: FDA-Public Use
  Company Number: US-AMGEN-USASP2012059619

PATIENT
  Age: 61 Year
  Sex: Female
  Weight: 74.83 kg

DRUGS (2)
  1. ENBREL [Suspect]
     Indication: RHEUMATOID ARTHRITIS
     Dosage: 50 mg, qwk
     Route: 058
     Dates: start: 20120803, end: 20120831
  2. METHOTREXATE [Concomitant]
     Indication: RHEUMATOID ARTHRITIS
     Dosage: 15 mg, qwk
     Route: 048
     Dates: end: 20120829

REACTIONS (8)
  - Asthenia [Recovered/Resolved]
  - Balance disorder [Recovered/Resolved]
  - Motor dysfunction [Recovered/Resolved]
  - Mental status changes [Recovered/Resolved]
  - Amnesia [Recovered/Resolved]
  - Headache [Recovered/Resolved]
  - Postictal state [Recovered/Resolved]
  - Convulsion [Recovered/Resolved]
